FAERS Safety Report 6728315-2 (Version None)
Quarter: 2010Q2

REPORT INFORMATION
  Report Type: 
  Country: None (occurrence: None)
  Receive Date: 20100512
  Receipt Date: 20100427
  Transmission Date: 20101027
  Serious: Yes (Hospitalization, Other)
  Sender: FDA-Public Use
  Company Number: 011276

PATIENT
  Sex: Female
  Weight: 118.8 kg

DRUGS (3)
  1. CIMZIA [Suspect]
     Indication: CROHN'S DISEASE
     Dosage: SUBCUTANEOUS
     Route: 058
     Dates: start: 20090515
  2. SULFASALAZINE [Concomitant]
  3. IRON [Concomitant]

REACTIONS (4)
  - BLOOD IRON DECREASED [None]
  - DRUG ERUPTION [None]
  - INTESTINAL FISTULA INFECTION [None]
  - INTESTINAL OBSTRUCTION [None]
